FAERS Safety Report 4920055-5 (Version None)
Quarter: 2006Q1

REPORT INFORMATION
  Report Type: 
  Country: None (occurrence: None)
  Receive Date: 20060223
  Receipt Date: 20051027
  Transmission Date: 20060701
  Serious: Yes (Other)
  Sender: FDA-Public Use
  Company Number: PHNU2005DE03578

PATIENT
  Age: 69 Year
  Sex: Male
  Weight: 92 kg

DRUGS (10)
  1. PREDNISOLONE [Concomitant]
     Indication: PROSTATE CANCER METASTATIC
     Dosage: 5 MG, QD
     Route: 048
     Dates: start: 20050401
  2. ZOMETA [Suspect]
     Indication: METASTASES TO BONE
     Dosage: 4 MG, QMO
     Route: 042
     Dates: start: 20020926
  3. TAXOTERE [Concomitant]
     Indication: PROSTATE CANCER METASTATIC
     Dosage: 140 MG, QD
     Route: 042
     Dates: start: 20030601, end: 20040101
  4. NOVANTRONE ^WYETH-AYERST^ [Concomitant]
     Indication: PROSTATE CANCER METASTATIC
     Dosage: 25 MG, QD
     Route: 042
     Dates: start: 20050101, end: 20050301
  5. DEXAMETHASONE SODIUM PHOSPHATE [Concomitant]
     Indication: PROSTATE CANCER METASTATIC
     Dosage: 5 MG, QD
     Route: 048
     Dates: start: 20030601, end: 20040101
  6. PREDNISONE [Concomitant]
     Indication: PROSTATE CANCER METASTATIC
     Dosage: 5 MG, QD
     Route: 048
     Dates: start: 20050401
  7. ESTRAMUSTINE [Concomitant]
     Indication: PROSTATE CANCER METASTATIC
     Dosage: 280 MG, BID
     Route: 048
     Dates: start: 20020701, end: 20021001
  8. DICLOFENAC [Concomitant]
     Indication: PROSTATE CANCER METASTATIC
     Dosage: 75 MG, BID
     Route: 065
     Dates: start: 20050701
  9. OMEPRAZOLE [Concomitant]
     Indication: PROPHYLAXIS AGAINST GASTROINTESTINAL ULCER
     Dosage: 40 MG, QD
     Route: 065
     Dates: start: 20050401
  10. RADIOTHERAPY [Concomitant]
     Indication: RADIOTHERAPY TO BONE
     Route: 061
     Dates: start: 20041101

REACTIONS (6)
  - BIOPSY SITE UNSPECIFIED ABNORMAL [None]
  - DENTAL TREATMENT [None]
  - ORAL SURGERY [None]
  - OSTEOMYELITIS [None]
  - OSTEONECROSIS [None]
  - X-RAY ABNORMAL [None]
